FAERS Safety Report 9177021 (Version 1)
Quarter: 2013Q1

REPORT INFORMATION
  Report Type: Spontaneous
  Country: US (occurrence: US)
  Receive Date: 20130321
  Receipt Date: 20130321
  Transmission Date: 20140127
  Serious: Yes (Other)
  Sender: FDA-Public Use
  Company Number: US-PFIZER INC-2013089099

PATIENT
  Age: 35 Year
  Sex: Male
  Weight: 149 kg

DRUGS (1)
  1. VIAGRA [Suspect]
     Indication: ERECTILE DYSFUNCTION
     Dosage: 250 MG, UNK
     Route: 048
     Dates: start: 2008

REACTIONS (2)
  - Drug administration error [Unknown]
  - Erection increased [Not Recovered/Not Resolved]
